FAERS Safety Report 5381011-9 (Version None)
Quarter: 2007Q3

REPORT INFORMATION
  Report Type: 
  Country: None (occurrence: None)
  Receive Date: 20070706
  Receipt Date: 20070628
  Transmission Date: 20080115
  Serious: Yes (Death, Other)
  Sender: FDA-Public Use
  Company Number: IE-ABBOTT-07P-229-0356223-00

PATIENT
  Sex: Male

DRUGS (3)
  1. KLACID [Suspect]
     Indication: LOWER RESPIRATORY TRACT INFECTION
     Route: 048
     Dates: start: 20060607
  2. DOXYCYCLINE HYCLATE [Concomitant]
     Indication: DRUG USE FOR UNKNOWN INDICATION
  3. FUSIDIC ACID [Concomitant]
     Indication: DRUG USE FOR UNKNOWN INDICATION

REACTIONS (5)
  - COMPLETED SUICIDE [None]
  - DEPRESSED MOOD [None]
  - HALLUCINATION [None]
  - MOUTH ULCERATION [None]
  - NASAL OEDEMA [None]
